FAERS Safety Report 6324721-9 (Version None)
Quarter: 2009Q3

REPORT INFORMATION
  Report Type: 
  Country: None (occurrence: None)
  Receive Date: 20090824
  Receipt Date: 20090506
  Transmission Date: 20100115
  Serious: No
  Sender: FDA-Public Use
  Company Number: US-ABBOTT-09P-163-0571922-00

PATIENT
  Sex: Male

DRUGS (6)
  1. NIASPAN [Suspect]
     Indication: BLOOD TRIGLYCERIDES INCREASED
     Route: 048
  2. NIASPAN [Suspect]
     Indication: HIGH DENSITY LIPOPROTEIN DECREASED
  3. FLAXSEED TABLET [Concomitant]
     Indication: DRUG USE FOR UNKNOWN INDICATION
  4. POMEGRANATE TABLET [Concomitant]
     Indication: DRUG USE FOR UNKNOWN INDICATION
  5. RESERVATOL [Concomitant]
     Indication: DRUG USE FOR UNKNOWN INDICATION
  6. JUNIMET [Concomitant]
     Indication: DRUG USE FOR UNKNOWN INDICATION

REACTIONS (1)
  - FLUSHING [None]
